FAERS Safety Report 4461132-5 (Version None)
Quarter: 2004Q3

REPORT INFORMATION
  Report Type: 
  Country: None (occurrence: None)
  Receive Date: 20040923
  Receipt Date: 20040910
  Transmission Date: 20050211
  Serious: Yes (Other)
  Sender: FDA-Public Use
  Company Number: DE-2004-031658

PATIENT
  Age: 36 Year
  Sex: Female

DRUGS (1)
  1. MIRENA [Suspect]
     Dosage: 20 UG/DAY, CONT, INTRA-UTERINE
     Route: 015
     Dates: start: 20040101

REACTIONS (4)
  - FOCAL NODULAR HYPERPLASIA [None]
  - HEPATIC MASS [None]
  - HEPATIC NECROSIS [None]
  - INFECTION [None]
